FAERS Safety Report 18014516 (Version 1)
Quarter: 2020Q3

REPORT INFORMATION
  Report Type: Spontaneous
  Country: US (occurrence: US)
  Receive Date: 20200713
  Receipt Date: 20200713
  Transmission Date: 20201103
  Serious: No
  Sender: FDA-Public Use
  Company Number: None

PATIENT
  Age: 55 Year
  Sex: Female
  Weight: 72 kg

DRUGS (6)
  1. BELSOMRA [Concomitant]
     Active Substance: SUVOREXANT
  2. ASPIRIN 81 MG [Concomitant]
     Active Substance: ASPIRIN
  3. COENZYME Q10 [Concomitant]
     Active Substance: DIETARY SUPPLEMENT\UBIDECARENONE
  4. PRAVASTATIN. [Concomitant]
     Active Substance: PRAVASTATIN
  5. ORPHENADRINE CITRATE. [Suspect]
     Active Substance: ORPHENADRINE CITRATE
     Indication: MUSCLE SPASMS
     Dosage: ?          QUANTITY:60 TABLET(S);?
     Route: 048
     Dates: start: 20200414, end: 20200430
  6. SYNTHROID [Concomitant]
     Active Substance: LEVOTHYROXINE SODIUM

REACTIONS (5)
  - Tremor [None]
  - Agitation [None]
  - Fear [None]
  - Vision blurred [None]
  - Hallucination, auditory [None]

NARRATIVE: CASE EVENT DATE: 20200428
